FAERS Safety Report 8993498 (Version 1)
Quarter: 2013Q1

REPORT INFORMATION
  Report Type: Report from Study
  Country: DE (occurrence: DE)
  Receive Date: 20130102
  Receipt Date: 20130102
  Transmission Date: 20140127
  Serious: Yes (Hospitalization)
  Sender: FDA-Public Use
  Company Number: DE-JNJFOC-20121213781

PATIENT
  Age: 81 Year
  Sex: Male
  Weight: 80 kg

DRUGS (6)
  1. RIVAROXABAN [Suspect]
     Indication: ATRIAL FIBRILLATION
     Route: 048
     Dates: start: 20120823
  2. RIVAROXABAN [Suspect]
     Indication: CEREBROVASCULAR ACCIDENT PROPHYLAXIS
     Route: 048
     Dates: start: 20120823
  3. SIMVASTATIN [Concomitant]
     Dates: start: 200601
  4. METOPROLOL SUCCINATE [Concomitant]
     Dates: start: 201001
  5. ACETYLSALICYLIC ACID [Concomitant]
     Indication: ANTICOAGULANT THERAPY
     Dates: start: 2002, end: 20120822
  6. EUTHYROX [Concomitant]
     Dates: start: 200601

REACTIONS (1)
  - Hip arthroplasty [Recovered/Resolved]
